FAERS Safety Report 7455276-3 (Version None)
Quarter: 2011Q2

REPORT INFORMATION
  Report Type: 
  Country: None (occurrence: None)
  Receive Date: 20110503
  Receipt Date: 20110421
  Transmission Date: 20111010
  Serious: Yes (Death, Hospitalization, Other)
  Sender: FDA-Public Use
  Company Number: US-SANOFI-AVENTIS-2011SA012322

PATIENT
  Age: 75 Year
  Sex: Female
  Weight: 61.82 kg

DRUGS (5)
  1. LOVASTATIN [Concomitant]
  2. DIGOXIN [Concomitant]
     Indication: ATRIAL FIBRILLATION
  3. MULTAQ [Suspect]
     Indication: ATRIAL FIBRILLATION
     Route: 048
     Dates: start: 20110218, end: 20110224
  4. CITALOPRAM [Concomitant]
     Indication: DEPRESSION
  5. DILTIAZEM [Concomitant]
     Indication: HYPERTENSION

REACTIONS (5)
  - CARDIAC ARREST [None]
  - ELECTROCARDIOGRAM QT PROLONGED [None]
  - OFF LABEL USE [None]
  - TORSADE DE POINTES [None]
  - HYPOXIC-ISCHAEMIC ENCEPHALOPATHY [None]
